FAERS Safety Report 7168153-2 (Version None)
Quarter: 2010Q4

REPORT INFORMATION
  Report Type: 
  Country: None (occurrence: None)
  Receive Date: 20101216
  Receipt Date: 20101208
  Transmission Date: 20110411
  Serious: Yes (Life-Threatening)
  Sender: FDA-Public Use
  Company Number: FR-BAXTER-2010BH029715

PATIENT
  Age: 52 Year
  Sex: Male

DRUGS (5)
  1. SUPRANE [Suspect]
     Indication: ANAESTHESIA
     Route: 055
     Dates: start: 19970404, end: 19970404
  2. AUGMENTIN [Suspect]
     Indication: PRODUCT USED FOR UNKNOWN INDICATION
     Route: 042
     Dates: start: 19970404, end: 19970404
  3. TRACRIUM [Suspect]
     Indication: PRODUCT USED FOR UNKNOWN INDICATION
     Route: 042
     Dates: start: 19970404, end: 19970404
  4. DIPRIVAN [Suspect]
     Indication: PRODUCT USED FOR UNKNOWN INDICATION
     Route: 042
     Dates: start: 19970404, end: 19970404
  5. FENTANYL CITRATE [Suspect]
     Indication: PRODUCT USED FOR UNKNOWN INDICATION
     Route: 042
     Dates: start: 19970404, end: 19970404

REACTIONS (1)
  - ANAPHYLACTIC SHOCK [None]
